FAERS Safety Report 8076481-1 (Version None)
Quarter: 2012Q1

REPORT INFORMATION
  Report Type: 
  Country: None (occurrence: None)
  Receive Date: 20120127
  Receipt Date: 20120125
  Transmission Date: 20120608
  Serious: Yes (Death, Hospitalization, Other)
  Sender: FDA-Public Use
  Company Number: US-B.I. PHARMACEUTICALS,INC./RIDGEFIELD-2011-BP-25446BP

PATIENT
  Age: 81 Year
  Sex: Female
  Weight: 46.72 kg

DRUGS (1)
  1. PRADAXA [Suspect]
     Dates: end: 20111031

REACTIONS (1)
  - ISCHAEMIC STROKE [None]
